FAERS Safety Report 13496779 (Version 4)
Quarter: 2017Q3

REPORT INFORMATION
  Report Type: Spontaneous
  Country: PL (occurrence: PL)
  Receive Date: 20170428
  Receipt Date: 20170816
  Transmission Date: 20171127
  Serious: Yes (Hospitalization, Other)
  Sender: FDA-Public Use
  Company Number: PL-JNJFOC-20170421485

PATIENT
  Age: 69 Year
  Sex: Male
  Weight: 88 kg

DRUGS (5)
  1. ELIGARD [Concomitant]
     Active Substance: LEUPROLIDE ACETATE
     Route: 058
     Dates: start: 2012
  2. PAMIDRONATE [Suspect]
     Active Substance: PAMIDRONATE DISODIUM
     Indication: HORMONE-REFRACTORY PROSTATE CANCER
     Route: 065
     Dates: start: 2014
  3. ZYTIGA [Suspect]
     Active Substance: ABIRATERONE ACETATE
     Indication: HORMONE-REFRACTORY PROSTATE CANCER
     Route: 048
     Dates: start: 201405, end: 201606
  4. PREDNISONE. [Concomitant]
     Active Substance: PREDNISONE
     Indication: HORMONE-REFRACTORY PROSTATE CANCER
     Route: 065
     Dates: start: 2014
  5. ZOLEDRONIC ACID. [Suspect]
     Active Substance: ZOLEDRONIC ACID
     Indication: PRODUCT USED FOR UNKNOWN INDICATION
     Route: 065

REACTIONS (4)
  - Prostate cancer metastatic [Unknown]
  - Blood pressure increased [Recovered/Resolved]
  - Pulmonary embolism [Recovered/Resolved]
  - Osteonecrosis of jaw [Recovered/Resolved]

NARRATIVE: CASE EVENT DATE: 2014
